FAERS Safety Report 9052689 (Version 2)
Quarter: 2013Q1

REPORT INFORMATION
  Report Type: Spontaneous
  Country: US (occurrence: US)
  Receive Date: 20130207
  Receipt Date: 20130301
  Transmission Date: 20140127
  Serious: No
  Sender: FDA-Public Use
  Company Number: US-PFIZER INC-2013044243

PATIENT
  Age: 60 Year
  Sex: Male
  Weight: 107.9 kg

DRUGS (2)
  1. INDERAL LA [Suspect]
     Indication: ARRHYTHMIA
     Dosage: 80 MG, DAILY
     Route: 048
     Dates: start: 1980
  2. NORPACE CR [Suspect]
     Indication: ARRHYTHMIA
     Dosage: 150 MG, 2X/DAY
     Dates: start: 1980

REACTIONS (2)
  - Drug screen positive [Unknown]
  - Drug screen positive [Unknown]
